FAERS Safety Report 16237228 (Version 1)
Quarter: 2019Q2

REPORT INFORMATION
  Report Type: Spontaneous
  Country: IN (occurrence: IN)
  Receive Date: 20190422
  Receipt Date: 20190422
  Transmission Date: 20190711
  Serious: No
  Sender: FDA-Public Use
  Company Number: None

PATIENT
  Age: 32 Year
  Sex: Female
  Weight: 67 kg

DRUGS (5)
  1. LUPIGEST 200 [Suspect]
     Active Substance: PROGESTERONE
     Indication: PROLONGED PREGNANCY
     Dosage: ?          QUANTITY:30 CAPSULE(S);?
     Route: 048
  2. MCBM-69 [Concomitant]
  3. FOLIC ACID. [Concomitant]
     Active Substance: FOLIC ACID
  4. B6 [Concomitant]
     Active Substance: PYRIDOXINE HYDROCHLORIDE
  5. VITAMIN B12 [Concomitant]
     Active Substance: CYANOCOBALAMIN

REACTIONS (6)
  - Dizziness [None]
  - Hypoaesthesia [None]
  - Somnolence [None]
  - Slow response to stimuli [None]
  - Peripheral coldness [None]
  - Mental impairment [None]

NARRATIVE: CASE EVENT DATE: 20190410
